FAERS Safety Report 12765931 (Version 1)
Quarter: 2016Q3

REPORT INFORMATION
  Report Type: Spontaneous
  Country: US (occurrence: US)
  Receive Date: 20160915
  Receipt Date: 20160915
  Transmission Date: 20161109
  Serious: No
  Sender: FDA-Public Use
  Company Number: None

PATIENT

DRUGS (1)
  1. IMATINIB MESYLATE 400MG RANBAXY [Suspect]
     Active Substance: IMATINIB MESYLATE
     Indication: LEUKAEMIA
     Route: 048
     Dates: start: 20150811

REACTIONS (3)
  - Peripheral swelling [None]
  - Eyelid oedema [None]
  - Skin exfoliation [None]

NARRATIVE: CASE EVENT DATE: 20151115
